FAERS Safety Report 18923622 (Version 2)
Quarter: 2021Q1

REPORT INFORMATION
  Report Type: Report from Study
  Country: FR (occurrence: FR)
  Receive Date: 20210222
  Receipt Date: 20210322
  Transmission Date: 20210420
  Serious: Yes (Hospitalization, Other)
  Sender: FDA-Public Use
  Company Number: FR-PFIZER INC-2021129320

PATIENT
  Age: 49 Year
  Sex: Male
  Weight: 55 kg

DRUGS (17)
  1. METHYLPREDNISOLONE. [Concomitant]
     Active Substance: METHYLPREDNISOLONE
     Dates: start: 20191105, end: 20191105
  2. PREGABALIN. [Concomitant]
     Active Substance: PREGABALIN
     Dates: start: 20191001
  3. VENLAFAXINE HYDROCHLORIDE. [Concomitant]
     Active Substance: VENLAFAXINE HYDROCHLORIDE
     Dates: start: 20191016
  4. SODIUM HYDROGEN CARBONATE [Concomitant]
     Active Substance: SODIUM BICARBONATE
     Dates: start: 20191014
  5. PREDNISONE. [Concomitant]
     Active Substance: PREDNISONE
     Dates: start: 20191104, end: 20191106
  6. PEMBROLIZUMAB. [Suspect]
     Active Substance: PEMBROLIZUMAB
     Indication: NON-SMALL CELL LUNG CANCER
     Dosage: 200 MG, EVERY 3 WEEKS
     Route: 042
     Dates: start: 20191014, end: 20191128
  7. LIDOCAINE/PRILOCAINE [Concomitant]
     Active Substance: LIDOCAINE\PRILOCAINE
     Dates: start: 20191105, end: 20191105
  8. LOPERAMIDE [Concomitant]
     Active Substance: LOPERAMIDE
     Dates: start: 20191014
  9. MACROGOL [Concomitant]
     Active Substance: POLYETHYLENE GLYCOLS
     Dates: start: 20191016
  10. AMOXICILLIN. [Concomitant]
     Active Substance: AMOXICILLIN
     Dosage: UNK
     Dates: start: 20191018, end: 20191025
  11. PARAFFIN [Concomitant]
     Active Substance: PARAFFIN
     Dates: start: 20191014
  12. EMEND [Concomitant]
     Active Substance: APREPITANT
     Dates: start: 20191105, end: 20191107
  13. OXYCODONE [Concomitant]
     Active Substance: OXYCODONE
     Dates: start: 20191105
  14. METOCLOPRAMIDE. [Concomitant]
     Active Substance: METOCLOPRAMIDE
     Dates: start: 20191014, end: 20191109
  15. PARACETAMOL [Concomitant]
     Active Substance: ACETAMINOPHEN
     Dates: start: 20191001
  16. PEMETREXED DISODIUM [Suspect]
     Active Substance: PEMETREXED DISODIUM
     Dosage: 855 MG EVERY 2 WEEKS
     Route: 042
     Dates: start: 20191014
  17. CARBOPLATIN. [Suspect]
     Active Substance: CARBOPLATIN
     Indication: NON-SMALL CELL LUNG CANCER
     Dosage: 575 MG, EVERY 3 WEEKS
     Route: 042
     Dates: start: 20191014

REACTIONS (7)
  - Thrombocytopenia [Unknown]
  - Immune-mediated enterocolitis [Recovered/Resolved]
  - Diarrhoea [Recovered/Resolved]
  - Rectal haemorrhage [Recovered/Resolved]
  - Diarrhoea [Recovered/Resolved]
  - Anaemia [Unknown]
  - Campylobacter test positive [Unknown]

NARRATIVE: CASE EVENT DATE: 201911
